FAERS Safety Report 5972922-1 (Version None)
Quarter: 2008Q4

REPORT INFORMATION
  Report Type: 
  Country: None (occurrence: None)
  Receive Date: 20081201
  Receipt Date: 20081028
  Transmission Date: 20090506
  Serious: Yes (Hospitalization)
  Sender: FDA-Public Use
  Company Number: GB-ROCHE-594300

PATIENT
  Sex: Male
  Weight: 107 kg

DRUGS (3)
  1. CAPECITABINE [Suspect]
     Dosage: TWO DIVIDED DOSES OR 625 MG/M2 TWICE DAILY.
     Route: 048
     Dates: start: 20080908
  2. EPIRUBICIN [Suspect]
     Dosage: DAY 1 OF A THREE WEEK CYCLE.
     Route: 042
     Dates: start: 20080908
  3. CISPLATIN [Suspect]
     Route: 042
     Dates: start: 20080908

REACTIONS (1)
  - CONVULSION [None]
